FAERS Safety Report 8255728-2 (Version None)
Quarter: 2012Q2

REPORT INFORMATION
  Report Type: 
  Country: None (occurrence: None)
  Receive Date: 20120403
  Receipt Date: 20120329
  Transmission Date: 20120825
  Serious: Yes (Other)
  Sender: FDA-Public Use
  Company Number: PHHY2011VE106567

PATIENT
  Sex: Female

DRUGS (1)
  1. GILENYA [Suspect]
     Indication: MULTIPLE SCLEROSIS
     Dosage: 0.5 MG, QD
     Route: 048
     Dates: start: 20111127

REACTIONS (8)
  - PHOTOSENSITIVITY REACTION [None]
  - EYE PAIN [None]
  - CHEST PAIN [None]
  - DRY EYE [None]
  - ASPHYXIA [None]
  - DYSPNOEA [None]
  - SUFFOCATION FEELING [None]
  - MUSCULAR WEAKNESS [None]
